FAERS Safety Report 5400995-3 (Version None)
Quarter: 2007Q3

REPORT INFORMATION
  Report Type: 
  Country: None (occurrence: None)
  Receive Date: 20070730
  Receipt Date: 20070727
  Transmission Date: 20080115
  Serious: Yes (Hospitalization)
  Sender: FDA-Public Use
  Company Number: DE-BRISTOL-MYERS SQUIBB COMPANY-13776554

PATIENT
  Age: 55 Year
  Sex: Female

DRUGS (2)
  1. TAXOL [Suspect]
     Indication: OVARIAN CANCER
     Route: 042
     Dates: start: 20070508, end: 20070508
  2. CARBOPLATIN [Suspect]
     Indication: OVARIAN CANCER

REACTIONS (6)
  - ANXIETY [None]
  - BONE PAIN [None]
  - CHEST DISCOMFORT [None]
  - FEELING HOT [None]
  - HYPERTENSION [None]
  - TACHYCARDIA [None]
